FAERS Safety Report 9257567 (Version 1)
Quarter: 2013Q2

REPORT INFORMATION
  Report Type: Spontaneous
  Country: US (occurrence: None)
  Receive Date: 20130424
  Receipt Date: 20130424
  Transmission Date: 20140414
  Serious: No
  Sender: FDA-Public Use
  Company Number: None

PATIENT
  Age: 55 Year
  Sex: Female
  Weight: 58.6 kg

DRUGS (2)
  1. RAMELTEON [Suspect]
     Indication: DEPRESSION
     Dosage: AT BEDTIME
     Route: 048
     Dates: start: 20130227, end: 20130408
  2. RAMELTEON [Suspect]
     Indication: POST-TRAUMATIC STRESS DISORDER
     Dosage: AT BEDTIME
     Route: 048
     Dates: start: 20130227, end: 20130408

REACTIONS (3)
  - Periorbital oedema [None]
  - Head discomfort [None]
  - Sleep disorder [None]
